FAERS Safety Report 24368293 (Version 1)
Quarter: 2024Q3

REPORT INFORMATION
  Report Type: Spontaneous
  Country: US (occurrence: US)
  Receive Date: 20240926
  Receipt Date: 20240926
  Transmission Date: 20241016
  Serious: No
  Sender: SANOFI AVENTIS
  Company Number: US-SA-2024SA276943

PATIENT
  Age: 44 Year
  Sex: Male

DRUGS (1)
  1. APIDRA SOLOSTAR [Suspect]
     Active Substance: INSULIN GLULISINE
     Indication: Blood glucose increased
     Dosage: 8 U 3 TIMES EVERY WEEK
     Route: 058

REACTIONS (1)
  - Off label use [Unknown]
